FAERS Safety Report 6309229-9 (Version None)
Quarter: 2009Q3

REPORT INFORMATION
  Report Type: 
  Country: None (occurrence: None)
  Receive Date: 20090814
  Receipt Date: 20090422
  Transmission Date: 20100115
  Serious: Yes (Death, Other)
  Sender: FDA-Public Use
  Company Number: FR-PFIZER INC-2008158615

PATIENT
  Age: 44 Year

DRUGS (4)
  1. SUTENT [Suspect]
     Indication: RENAL CANCER METASTATIC
     Dosage: 100 MG, 1X/DAY
     Route: 048
     Dates: start: 20081201, end: 20081217
  2. ENDOXAN [Concomitant]
     Dosage: 50 MG, 1X/DAY
  3. METHOTREXATE [Concomitant]
     Dosage: 5 MG, TWICE PER WEEK
  4. GUTRON [Concomitant]
     Indication: HYPOTENSION
     Route: 048

REACTIONS (4)
  - HEPATIC FAILURE [None]
  - HYPOTENSION [None]
  - PRESYNCOPE [None]
  - VERTIGO [None]
